FAERS Safety Report 17982155 (Version 1)
Quarter: 2020Q3

REPORT INFORMATION
  Report Type: Spontaneous
  Country: US (occurrence: US)
  Receive Date: 20200702
  Receipt Date: 20200702
  Transmission Date: 20201103
  Serious: Yes (Death)
  Sender: FDA-Public Use
  Company Number: None

PATIENT
  Age: 32 Year
  Sex: Male
  Weight: 177.4 kg

DRUGS (8)
  1. REMDESIVIR. [Suspect]
     Active Substance: REMDESIVIR
     Indication: COVID-19 PNEUMONIA
     Route: 042
     Dates: start: 20200629, end: 20200702
  2. ENOXAPARIN 60 MG SQ Q12HRS [Concomitant]
     Dates: start: 20200628, end: 20200702
  3. REMDESIVIR 100 MG IV ONCE DAILY [Concomitant]
     Dates: start: 20200630, end: 20200701
  4. ASCORBIC ACID 1,000 MG [Concomitant]
     Dates: start: 20200628, end: 20200701
  5. REMDESIVIR 200 MG IV X 1 [Concomitant]
     Dates: start: 20200629, end: 20200629
  6. CONVALESCENT PLASMA [Concomitant]
     Active Substance: HUMAN PLASMA
     Dates: start: 20200629, end: 20200629
  7. METHYLPREDNISLONE 60 MG IVP Q6HR [Concomitant]
     Dates: start: 20200630, end: 20200701
  8. ZINC 220 MG PO BID [Concomitant]
     Dates: start: 20200628, end: 20200701

REACTIONS (6)
  - Hypercapnia [None]
  - Acute respiratory failure [None]
  - Cardiac arrest [None]
  - Hypoxia [None]
  - Multiple organ dysfunction syndrome [None]
  - Metabolic acidosis [None]

NARRATIVE: CASE EVENT DATE: 20200702
